FAERS Safety Report 24357400 (Version 1)
Quarter: 2024Q3

REPORT INFORMATION
  Report Type: Spontaneous
  Country: US (occurrence: US)
  Receive Date: 20240924
  Receipt Date: 20240924
  Transmission Date: 20241016
  Serious: No
  Sender: LAVIPHARM
  Company Number: US-Lavipharm SA-2161985

PATIENT
  Sex: Male

DRUGS (1)
  1. CLONIDINE TRANSDERMAL SYSTEM USP, 0.2 MG/DAY [Suspect]
     Active Substance: CLONIDINE
     Indication: Blood pressure increased
     Dates: start: 20230922

REACTIONS (1)
  - Drug ineffective [Unknown]
